FAERS Safety Report 7776861-5 (Version None)
Quarter: 2011Q3

REPORT INFORMATION
  Report Type: 
  Country: None (occurrence: None)
  Receive Date: 20110926
  Receipt Date: 20110824
  Transmission Date: 20111222
  Serious: No
  Sender: FDA-Public Use
  Company Number: US-BAYER-2011-077650

PATIENT
  Age: 47 Year
  Sex: Female

DRUGS (1)
  1. AVELOX [Suspect]

REACTIONS (2)
  - PALPITATIONS [None]
  - DYSPNOEA [None]
